FAERS Safety Report 4468291-9 (Version None)
Quarter: 2004Q4

REPORT INFORMATION
  Report Type: 
  Country: None (occurrence: None)
  Receive Date: 20041007
  Receipt Date: 20040927
  Transmission Date: 20050328
  Serious: Yes (Disabling)
  Sender: FDA-Public Use
  Company Number: GB-ROCHE-381600

PATIENT
  Sex: Male
  Weight: 70 kg

DRUGS (2)
  1. ROACCUTANE [Suspect]
     Route: 048
     Dates: start: 20000306
  2. COMBIVIR [Concomitant]
     Route: 065
     Dates: start: 19940615, end: 20000615

REACTIONS (2)
  - DEPRESSION [None]
  - PANIC DISORDER [None]
